FAERS Safety Report 7587251-2 (Version None)
Quarter: 2011Q3

REPORT INFORMATION
  Report Type: 
  Country: None (occurrence: None)
  Receive Date: 20110701
  Receipt Date: 20110622
  Transmission Date: 20111222
  Serious: Yes (Hospitalization)
  Sender: FDA-Public Use
  Company Number: US-ROCHE-786431

PATIENT
  Age: 82 Year
  Sex: Male
  Weight: 90.2 kg

DRUGS (6)
  1. NEXIUM [Concomitant]
     Dates: start: 20071003
  2. ZETIA [Concomitant]
     Dates: start: 20040101
  3. BENAZEPRIL HYDROCHLORIDE [Concomitant]
     Dates: start: 20040101
  4. HYDROCHLOROTHIAZIDE [Concomitant]
  5. NAPROXEN SODIUM [Suspect]
     Indication: ARTHRITIS
     Route: 048
     Dates: start: 20110422, end: 20110514
  6. PRAVACHOL [Concomitant]
     Dates: start: 20040101

REACTIONS (4)
  - RENAL FAILURE ACUTE [None]
  - BUNDLE BRANCH BLOCK RIGHT [None]
  - DEHYDRATION [None]
  - DUODENAL ULCER [None]
